FAERS Safety Report 9203299 (Version 1)
Quarter: 2013Q1

REPORT INFORMATION
  Report Type: Spontaneous
  Country: US (occurrence: None)
  Receive Date: 20120709
  Receipt Date: 20120709
  Transmission Date: 20140127
  Serious: Yes (Hospitalization)
  Sender: FDA-Public Use
  Company Number: PHEH2012US005682

PATIENT
  Age: 64 Year
  Sex: Male

DRUGS (6)
  1. GLEEVEC [Suspect]
     Indication: NEOPLASM MALIGNANT
     Route: 048
     Dates: start: 20120117
  2. GLIPIZIDE (GLIPIZIDE) [Concomitant]
  3. FAMOTIDINE (FAMOTIDINE) [Concomitant]
  4. FOLIC ACID (FOLIC ACID) [Concomitant]
  5. JANUVIA (SITAGLIPTIN PHOSPHATE) [Concomitant]
  6. COMBIVENT (PRATROPIUM BROMIDE, SALBUTAMOL SULFATE) [Concomitant]

REACTIONS (3)
  - Full blood count decreased [None]
  - Abdominal pain upper [None]
  - Fatigue [None]
